FAERS Safety Report 12805293 (Version 1)
Quarter: 2016Q4

REPORT INFORMATION
  Report Type: Other
  Country: JP (occurrence: JP)
  Receive Date: 20161004
  Receipt Date: 20161004
  Transmission Date: 20170207
  Serious: No
  Sender: FDA-Public Use
  Company Number: JP-LUPIN PHARMACEUTICALS INC.-2016-04115

PATIENT
  Age: 4 Year
  Sex: Male

DRUGS (6)
  1. CLARITHROMYCIN. [Interacting]
     Active Substance: CLARITHROMYCIN
     Indication: PRODUCT USED FOR UNKNOWN INDICATION
     Route: 065
  2. VIGABATRIN [Concomitant]
     Active Substance: VIGABATRIN
     Indication: EPILEPSY
     Route: 065
  3. VIGABATRIN [Concomitant]
     Active Substance: VIGABATRIN
     Dosage: DOSE REDUCED
     Route: 065
  4. PRANLUKAST [Interacting]
     Active Substance: PRANLUKAST
     Indication: PRODUCT USED FOR UNKNOWN INDICATION
     Route: 065
  5. TOPIRAMATE. [Suspect]
     Active Substance: TOPIRAMATE
     Indication: EPILEPSY
     Route: 065
  6. LAMOTRIGINE. [Concomitant]
     Active Substance: LAMOTRIGINE
     Indication: EPILEPSY
     Route: 065

REACTIONS (2)
  - Drug interaction [Unknown]
  - Somnolence [Recovered/Resolved]
